FAERS Safety Report 21334432 (Version 1)
Quarter: 2022Q3

REPORT INFORMATION
  Report Type: Spontaneous
  Country: US (occurrence: US)
  Receive Date: 20220914
  Receipt Date: 20220914
  Transmission Date: 20221026
  Serious: No
  Sender: FDA-Public Use
  Company Number: US-SUNOVION-2022SUN002652AA

PATIENT
  Sex: Female

DRUGS (1)
  1. XOPENEX [Suspect]
     Active Substance: LEVALBUTEROL HYDROCHLORIDE
     Dosage: UNK
     Route: 055

REACTIONS (7)
  - Nervousness [Unknown]
  - Throat irritation [Unknown]
  - Device issue [Unknown]
  - Device difficult to use [Unknown]
  - Device malfunction [Unknown]
  - Device dispensing error [Unknown]
  - Incorrect dose administered [Unknown]
